FAERS Safety Report 14034147 (Version 5)
Quarter: 2018Q1

REPORT INFORMATION
  Report Type: Report from Study
  Country: US (occurrence: US)
  Receive Date: 20171003
  Receipt Date: 20180220
  Transmission Date: 20180508
  Serious: No
  Sender: FDA-Public Use
  Company Number: PHEH2017US031745

PATIENT
  Age: 1 Year
  Sex: Female

DRUGS (1)
  1. ILARIS [Suspect]
     Active Substance: CANAKINUMAB
     Indication: PRODUCT USED FOR UNKNOWN INDICATION
     Dosage: UNK
     Route: 065
     Dates: start: 20170925

REACTIONS (6)
  - Somnolence [Recovered/Resolved]
  - Malaise [Unknown]
  - Incorrect dose administered [Unknown]
  - Diarrhoea [Unknown]
  - Drug administered to patient of inappropriate age [Unknown]
  - Fatigue [Unknown]

NARRATIVE: CASE EVENT DATE: 20170925
